FAERS Safety Report 9322843 (Version 1)
Quarter: 2013Q2

REPORT INFORMATION
  Report Type: Spontaneous
  Country: JP (occurrence: JP)
  Receive Date: 20130602
  Receipt Date: 20130602
  Transmission Date: 20140414
  Serious: Yes (Hospitalization)
  Sender: FDA-Public Use
  Company Number: JP-MYLANLABS-2013S1011306

PATIENT
  Age: 74 Year
  Sex: Male

DRUGS (4)
  1. LEVODOPA [Suspect]
     Dosage: 25 MG/DAY
     Route: 042
  2. LEVODOPA W/BENSERAZIDE [Suspect]
     Dosage: 300 MG/DAY
     Route: 065
  3. ROPINIROLE [Suspect]
     Dosage: 6 MG/DAY
     Route: 065
  4. AMANTADINE [Suspect]
     Dosage: 150 MG/DAY
     Route: 065

REACTIONS (2)
  - Oromandibular dystonia [Recovering/Resolving]
  - Glossoptosis [Unknown]
